FAERS Safety Report 6289269-9 (Version None)
Quarter: 2009Q3

REPORT INFORMATION
  Report Type: 
  Country: None (occurrence: None)
  Receive Date: 20090730
  Receipt Date: 20071116
  Transmission Date: 20100115
  Serious: Yes (Other)
  Sender: FDA-Public Use
  Company Number: US-ASTRAZENECA-2006UW08027

PATIENT
  Age: 55 Year
  Sex: Female
  Weight: 62.6 kg

DRUGS (11)
  1. SEROQUEL [Suspect]
     Indication: INSOMNIA
     Dosage: DOSE 400 MG, TOTAL DAILY DOSE 400 MG
     Route: 048
     Dates: start: 20050101
  2. SEROQUEL [Suspect]
     Indication: ANXIETY
     Dosage: DOSE 400 MG, TOTAL DAILY DOSE 400 MG
     Route: 048
     Dates: start: 20050101
  3. SEROQUEL [Suspect]
     Route: 048
     Dates: start: 20050929
  4. SEROQUEL [Suspect]
     Route: 048
     Dates: start: 20050929
  5. ABILIFY [Concomitant]
     Dates: start: 20060501, end: 20060601
  6. METHADONE HCL [Concomitant]
     Dosage: 5 MG TO 30 MG BID
     Route: 048
     Dates: start: 20050630
  7. NEURONTIN [Concomitant]
     Dosage: 300 MG 2 CAPSULES
     Dates: start: 20030514
  8. ZYPREXA [Concomitant]
     Dosage: 5 MG 1 TAB
     Dates: start: 20030515
  9. CYCLOBENZAPRINE HCL [Concomitant]
     Dosage: 10 MG 1 TAB
     Dates: start: 20030602
  10. CELEXA [Concomitant]
     Dosage: 40 MG 1 TAB
     Dates: start: 20030710
  11. PROMETHAZINE [Concomitant]
     Dosage: 25 MG 1 TAB
     Dates: start: 20031215

REACTIONS (7)
  - BLOOD CHOLESTEROL INCREASED [None]
  - BLOOD TRIGLYCERIDES INCREASED [None]
  - DIABETES MELLITUS [None]
  - NEUROGENIC BLADDER [None]
  - TREMOR [None]
  - TYPE 2 DIABETES MELLITUS [None]
  - URINARY RETENTION [None]
